FAERS Safety Report 9214107 (Version 4)
Quarter: 2013Q3

REPORT INFORMATION
  Report Type: Report from Study
  Country: SE (occurrence: SE)
  Receive Date: 20130405
  Receipt Date: 20130920
  Transmission Date: 20140515
  Serious: Yes (Hospitalization, Other)
  Sender: FDA-Public Use
  Company Number: SE-AMGEN-SWECT2013023464

PATIENT
  Age: 21 Year
  Sex: Male

DRUGS (1)
  1. ETANERCEPT [Suspect]
     Indication: ANKYLOSING SPONDYLITIS
     Dosage: 50 MG, WEEKLY
     Route: 058
     Dates: start: 20120516, end: 20130225

REACTIONS (2)
  - Testis cancer [Recovering/Resolving]
  - Genital cancer male [Not Recovered/Not Resolved]
